FAERS Safety Report 13844794 (Version 2)
Quarter: 2017Q3

REPORT INFORMATION
  Report Type: Spontaneous
  Country: CA (occurrence: CA)
  Receive Date: 20170808
  Receipt Date: 20170818
  Transmission Date: 20171127
  Serious: Yes (Hospitalization, Other)
  Sender: FDA-Public Use
  Company Number: CA-AMGEN-CANSP2017116489

PATIENT
  Age: 70 Year
  Sex: Male
  Weight: 79.4 kg

DRUGS (30)
  1. EURODAL [Concomitant]
     Dosage: UNK
  2. DESLORATADINE. [Concomitant]
     Active Substance: DESLORATADINE
     Dosage: UNK
  3. PANTOPRAZOLE [Concomitant]
     Active Substance: PANTOPRAZOLE
     Dosage: 40 MG, UNK
  4. EURO ASA EC [Concomitant]
     Dosage: 80 MG, UNK
  5. LOWPRIN [Concomitant]
     Dosage: UNK
  6. ENBREL [Suspect]
     Active Substance: ETANERCEPT
     Indication: PALINDROMIC RHEUMATISM
     Dosage: 25 MG, 2 TIMES/WK
     Route: 065
  7. ENBREL [Suspect]
     Active Substance: ETANERCEPT
     Dosage: 50 MG, QWK
     Route: 065
     Dates: start: 2003
  8. SIMVASTATIN. [Concomitant]
     Active Substance: SIMVASTATIN
     Dosage: 40 MG, UNK
  9. EURO D [Concomitant]
     Dosage: 10000 IU, UNK
  10. DESLORATADINE ALLERGY CONTROL [Concomitant]
     Dosage: 5 MG, UNK
  11. SANDOZ VALSARTAN [Concomitant]
     Active Substance: VALSARTAN
     Dosage: 80 MG, UNK
  12. PANTOLOC [Concomitant]
     Active Substance: PANTOPRAZOLE SODIUM
     Dosage: UNK
  13. ALFUZOSIN [Concomitant]
     Active Substance: ALFUZOSIN
     Dosage: UNK
  14. FERROUS SULFATE. [Concomitant]
     Active Substance: FERROUS SULFATE
     Dosage: UNK
  15. MIRTAZAPINE. [Concomitant]
     Active Substance: MIRTAZAPINE
     Dosage: UNK
  16. AF [Concomitant]
     Active Substance: UNSPECIFIED INGREDIENT
     Dosage: UNK
  17. CITALOPRAM [Concomitant]
     Active Substance: CITALOPRAM HYDROBROMIDE
     Dosage: 20 MG, UNK
  18. DIOVAN [Concomitant]
     Active Substance: VALSARTAN
     Dosage: 80 UNK, UNK
  19. ZOPICLONE [Concomitant]
     Active Substance: ZOPICLONE
     Dosage: UNK
  20. METHOTREXATE. [Concomitant]
     Active Substance: METHOTREXATE
     Dosage: 10 MG, UNK
  21. HYDROCHLOROTHIAZIDE. [Concomitant]
     Active Substance: HYDROCHLOROTHIAZIDE
     Dosage: 12.5 ABSENT, UNK
  22. EURO FOLIC [Concomitant]
     Dosage: 5 MG, UNK
  23. FOLIC ACID. [Concomitant]
     Active Substance: FOLIC ACID
     Indication: PALINDROMIC RHEUMATISM
     Dosage: 5 MG, 2 TIMES/WK
  24. VALSARTAN. [Concomitant]
     Active Substance: VALSARTAN
     Dosage: UNK
  25. PATANOL [Concomitant]
     Active Substance: OLOPATADINE HYDROCHLORIDE
     Dosage: UNK
  26. NOVO-CHLOROQUINE [Concomitant]
     Indication: PALINDROMIC RHEUMATISM
     Dosage: 250 MG, UNK (4 DAYS OUT OF 7)
  27. AVAMYS [Concomitant]
     Active Substance: FLUTICASONE FUROATE
     Dosage: UNK
  28. METHOTREXATE. [Concomitant]
     Active Substance: METHOTREXATE
     Indication: PALINDROMIC RHEUMATISM
     Dosage: 20 MG, QWK
     Route: 048
  29. ASA [Concomitant]
     Active Substance: ASPIRIN
     Dosage: UNK
  30. OLANZAPINE. [Concomitant]
     Active Substance: OLANZAPINE
     Dosage: UNK

REACTIONS (21)
  - Mitral valve incompetence [Unknown]
  - Myocardial ischaemia [Unknown]
  - Carotid artery calcification [Unknown]
  - Cognitive disorder [Unknown]
  - Psychotic disorder [Unknown]
  - Dementia [Unknown]
  - Depressed mood [Unknown]
  - Cerebrovascular accident [Recovering/Resolving]
  - Prostate examination abnormal [Unknown]
  - Leukoencephalopathy [Unknown]
  - Aphasia [Unknown]
  - Aortic dilatation [Unknown]
  - Fatigue [Unknown]
  - Suicidal ideation [Unknown]
  - Respiratory failure [Unknown]
  - Sensation of foreign body [Unknown]
  - Off label use [Unknown]
  - Dementia Alzheimer^s type [Unknown]
  - Tricuspid valve incompetence [Unknown]
  - Language disorder [Unknown]
  - Muscular weakness [Unknown]

NARRATIVE: CASE EVENT DATE: 20140206
